FAERS Safety Report 8350137-X (Version None)
Quarter: 2012Q2

REPORT INFORMATION
  Report Type: 
  Country: None (occurrence: None)
  Receive Date: 20120510
  Receipt Date: 20120502
  Transmission Date: 20120825
  Serious: Yes (Other)
  Sender: FDA-Public Use
  Company Number: US-BAYER-2012-007890

PATIENT
  Age: 38 Year
  Sex: Female
  Weight: 114 kg

DRUGS (15)
  1. YAZ [Suspect]
     Route: 048
  2. SYNTHROID [Concomitant]
     Dosage: EVERY DAY
     Dates: start: 20070912
  3. SUDAFED 12 HOUR [Concomitant]
  4. PHENERGAN [Concomitant]
     Indication: NAUSEA
     Dosage: AS NEEDED
     Dates: start: 20070306
  5. DIFLUCAN [Concomitant]
     Dosage: 150 MG TABLET , ONCE
     Dates: start: 20070510
  6. FLUCONAZOLE [Concomitant]
     Dosage: 150 MG TABLETS; TK 1 T QD
     Route: 048
     Dates: start: 20070512, end: 20070526
  7. METRONIDAZOLE [Concomitant]
     Dosage: 75 % GEL;  5 DAYS
     Route: 067
     Dates: start: 20070604
  8. EFFEXOR XR [Concomitant]
     Dosage: 150 MG, EVERY DAY
     Dates: start: 20070912
  9. CIPROFLOXACIN HCL [Concomitant]
     Dosage: 500 MG TABLETS; TK 1 T DAILY FOR 5 DAYS
     Route: 048
     Dates: start: 20070402
  10. AMOXICILLIN [Concomitant]
     Dosage: 250 MG,ONE TWICE A DAY FOR SEVEN DAYS
     Dates: start: 20070420
  11. PROMETHAZINE [Concomitant]
     Dosage: 12.5 MG TABLETS; TAKE ONE TABLET EVERY 6 HOURS AS NEEDED
     Route: 048
     Dates: start: 20070306
  12. NASONEX [Concomitant]
     Dosage: UNK
     Dates: start: 20070430
  13. AMOXICILLIN [Concomitant]
     Dosage: 250 MG,TK 1 CAPSULE THREE TIMES DAILY
     Route: 048
     Dates: start: 20070421
  14. ACIDOPHILUS [Concomitant]
     Dosage: UNK
     Dates: start: 20070306
  15. ZITHROMAX [Concomitant]
     Dosage: UNK
     Dates: start: 20070306, end: 20070430

REACTIONS (1)
  - DEEP VEIN THROMBOSIS [None]
